FAERS Safety Report 8255676 (Version 2)
Quarter: 2013Q1

REPORT INFORMATION
  Report Type: Spontaneous
  Country: US (occurrence: US)
  Receive Date: 20111118
  Receipt Date: 20130117
  Transmission Date: 20140127
  Serious: Yes (Other)
  Sender: FDA-Public Use
  Company Number: US-RB-031166-11

PATIENT
  Age: 26 None
  Sex: Female

DRUGS (1)
  1. SUBOXONE FILM [Suspect]
     Indication: DRUG DEPENDENCE
     Route: 065
     Dates: start: 20110531

REACTIONS (3)
  - Foetal death [Recovered/Resolved]
  - Placental transfusion syndrome [Recovered/Resolved]
  - Exposure during pregnancy [Recovered/Resolved]
